FAERS Safety Report 7814016-6 (Version None)
Quarter: 2011Q4

REPORT INFORMATION
  Report Type: 
  Country: None (occurrence: None)
  Receive Date: 20111012
  Receipt Date: 20111008
  Transmission Date: 20120403
  Serious: Yes (Life-Threatening, Other)
  Sender: FDA-Public Use
  Company Number: 201111299

PATIENT
  Sex: Male

DRUGS (1)
  1. LIORESAL [Suspect]
     Indication: MUSCLE SPASTICITY
     Dosage: MCG, DAILY, INTRATHECAL

REACTIONS (5)
  - BRADYCARDIA [None]
  - LETHARGY [None]
  - SOMNOLENCE [None]
  - HYPOKALAEMIA [None]
  - OVERDOSE [None]
